FAERS Safety Report 9301725 (Version 1)
Quarter: 2013Q2

REPORT INFORMATION
  Report Type: Report from Study
  Country: TR (occurrence: TR)
  Receive Date: 20130521
  Receipt Date: 20130521
  Transmission Date: 20140414
  Serious: Yes (Death, Other)
  Sender: FDA-Public Use
  Company Number: TR-ROCHE-1223808

PATIENT
  Sex: 0

DRUGS (2)
  1. BEVACIZUMAB [Suspect]
     Indication: MALIGNANT GLIOMA
     Route: 042
  2. IRINOTECAN [Suspect]
     Indication: MALIGNANT GLIOMA
     Dosage: ON DAY 1, THE TREATMENT REPEATED EVERY 2 WEEKS
     Route: 065

REACTIONS (17)
  - Pneumonia [Fatal]
  - Myocardial infarction [Fatal]
  - Diarrhoea [Fatal]
  - Deep vein thrombosis [Unknown]
  - Fatigue [Unknown]
  - Blood bilirubin increased [Unknown]
  - Lung infection [Unknown]
  - Neutropenia [Unknown]
  - Febrile neutropenia [Unknown]
  - Hypertension [Unknown]
  - Nausea [Unknown]
  - Vomiting [Unknown]
  - Haemorrhage [Unknown]
  - Mucosal inflammation [Unknown]
  - Anaemia [Unknown]
  - Thrombocytopenia [Unknown]
  - Rash [Unknown]
